FAERS Safety Report 11053304 (Version 2)
Quarter: 2015Q2

REPORT INFORMATION
  Report Type: Spontaneous
  Country: US (occurrence: US)
  Receive Date: 20150421
  Receipt Date: 20150527
  Transmission Date: 20150821
  Serious: No
  Sender: FDA-Public Use
  Company Number: US-PFIZER INC-2015136124

PATIENT
  Age: 63 Year
  Sex: Female

DRUGS (8)
  1. ATORVASTATIN [Concomitant]
     Active Substance: ATORVASTATIN
     Dosage: 10 MG, 1X/DAY (TAKE 1 TABLET BY MOUTH)
     Route: 048
     Dates: start: 20140701
  2. METOPROLOL T [Concomitant]
     Dosage: 25 MG, 1X/DAY (25MG 1 TABLET BY MOUTH )
     Route: 048
     Dates: start: 20140701
  3. MIRTAZAPINE. [Concomitant]
     Active Substance: MIRTAZAPINE
     Dosage: 45 MG, 1X/DAY (TAKE 1 TABLET DAILY )
     Route: 048
  4. CELECOXIB. [Suspect]
     Active Substance: CELECOXIB
     Indication: ARTHRITIS
     Dosage: 200 MG, 1X/DAY (TAKE 1 CAPSULE BY MOUTH)
     Route: 048
     Dates: start: 20150505
  5. FISH OIL [Concomitant]
     Active Substance: FISH OIL
     Dosage: 2 DF, DAILY
     Dates: start: 20050102
  6. CENTRUM SILVER [Concomitant]
     Active Substance: VITAMINS
     Dosage: 1 TABLET BY MOUTH
     Route: 048
     Dates: start: 20050101
  7. CLONAZEPAM. [Concomitant]
     Active Substance: CLONAZEPAM
     Dosage: 0.5 MG, 1X/DAY (1 TABLET BY MOUTH )
     Route: 048
     Dates: start: 20140701
  8. QUETIAPINE [Concomitant]
     Active Substance: QUETIAPINE
     Dosage: 300 MG, UNK (HALF IN AFTER NOON AND 1 TABLET AT BED TIME)

REACTIONS (1)
  - Drug ineffective [Unknown]
